FAERS Safety Report 5827210-0 (Version None)
Quarter: 2008Q3

REPORT INFORMATION
  Report Type: 
  Country: None (occurrence: None)
  Receive Date: 20080725
  Receipt Date: 20080718
  Transmission Date: 20090109
  Serious: Yes (Other)
  Sender: FDA-Public Use
  Company Number: GXKR2008AT06747

PATIENT
  Age: 12 Year
  Sex: Female

DRUGS (1)
  1. OSPEN (NGX) (PHENOXYMETHYLPENICILLIN POTASSIUM) UNKNOWN, 750 [Suspect]
     Indication: BORRELIA BURGDORFERI SEROLOGY POSITIVE
     Dosage: 1.5 TSP, BID; ORAL
     Route: 048
     Dates: start: 20080616, end: 20080705

REACTIONS (1)
  - TOOTH DISCOLOURATION [None]
